FAERS Safety Report 5143049-6 (Version None)
Quarter: 2006Q4

REPORT INFORMATION
  Report Type: 
  Country: None (occurrence: None)
  Receive Date: 20061031
  Receipt Date: 20061031
  Transmission Date: 20070319
  Serious: No
  Sender: FDA-Public Use
  Company Number: None

PATIENT
  Sex: Female

DRUGS (1)
  1. ZOLOFT [Suspect]
     Dosage: 50 MG PO
     Route: 048
     Dates: start: 20050101

REACTIONS (2)
  - ABDOMINAL DISCOMFORT [None]
  - NAUSEA [None]
